FAERS Safety Report 6481036 (Version 8)
Quarter: 2016Q1

REPORT INFORMATION
  Report Type: Spontaneous
  Country: US (occurrence: US)
  Receive Date: 20071205
  Receipt Date: 20160311
  Transmission Date: 20160526
  Serious: Yes (Other)
  Sender: FDA-Public Use
  Company Number: US-ROCHE-512846

PATIENT
  Age: 34 Year
  Sex: Male
  Weight: 70.3 kg

DRUGS (1)
  1. ACCUTANE [Suspect]
     Active Substance: ISOTRETINOIN
     Indication: ACNE
     Dosage: PATIENT REFILLED RX APPROXIMATELY 2 TIMES
     Route: 048
     Dates: start: 19920521, end: 19921031

REACTIONS (14)
  - Depression [Unknown]
  - Emotional disorder [Unknown]
  - Enteritis [Unknown]
  - Haemorrhoids [Recovered/Resolved]
  - Melanocytic naevus [Recovering/Resolving]
  - Inguinal hernia [Recovered/Resolved]
  - Panic attack [Unknown]
  - Fear [Recovering/Resolving]
  - Irritable bowel syndrome [Unknown]
  - Anxiety [Unknown]
  - Eczema [Recovering/Resolving]
  - Colitis [Unknown]
  - Stress fracture [Unknown]
  - Iliotibial band syndrome [Unknown]

NARRATIVE: CASE EVENT DATE: 1993
